FAERS Safety Report 6132056-2 (Version None)
Quarter: 2009Q1

REPORT INFORMATION
  Report Type: 
  Country: None (occurrence: None)
  Receive Date: 20090325
  Receipt Date: 20090313
  Transmission Date: 20090719
  Serious: Yes (Death)
  Sender: FDA-Public Use
  Company Number: US-PFIZER INC-2009175495

PATIENT
  Sex: Female
  Weight: 64 kg

DRUGS (13)
  1. TIKOSYN [Suspect]
     Dosage: 250 UG, 2X/DAY
     Dates: start: 20090101
  2. LOPRESSOR [Concomitant]
     Dosage: 75 MG, 2X/DAY
  3. ACCUPRIL [Concomitant]
     Dosage: 10 MG, 2X/DAY
  4. NITROGLYCERIN [Concomitant]
  5. MAG-OX [Concomitant]
     Dosage: 400 MG, 2X/DAY
  6. PROTONIX [Concomitant]
     Dosage: 40 MG, 2X/DAY
  7. DIGOXIN [Concomitant]
     Dosage: 0.125 UG, 1X/DAY
  8. XANAX [Concomitant]
     Dosage: 0.5 MG, 1X/DAY
  9. ACETYLSALICYLIC ACID [Concomitant]
     Dosage: 81 MG, UNK
  10. FERROUS SULFATE [Concomitant]
     Dosage: 325 MG, 3X/DAY
  11. GLUCOPHAGE [Concomitant]
     Dosage: 500 MG, 1X/DAY
  12. PRAVACHOL [Concomitant]
     Dosage: 10 MG, 1X/DAY
  13. AMBIEN [Concomitant]

REACTIONS (2)
  - CARDIOMYOPATHY [None]
  - SUDDEN CARDIAC DEATH [None]
